FAERS Safety Report 5766662-1 (Version None)
Quarter: 2008Q2

REPORT INFORMATION
  Report Type: 
  Country: None (occurrence: None)
  Receive Date: 20080612
  Receipt Date: 20080522
  Transmission Date: 20081010
  Serious: Yes (Hospitalization)
  Sender: FDA-Public Use
  Company Number: US-BAYER-200824061NA

PATIENT
  Age: 33 Year
  Sex: Female

DRUGS (2)
  1. BETASERON [Suspect]
     Indication: RELAPSING-REMITTING MULTIPLE SCLEROSIS
     Dosage: TOTAL DAILY DOSE: 8 MIU
     Route: 058
     Dates: start: 20050901, end: 20080518
  2. VICODIN [Suspect]
     Dates: start: 20080507

REACTIONS (3)
  - ABDOMINAL TENDERNESS [None]
  - CONSTIPATION [None]
  - INJECTION SITE INFECTION [None]
